FAERS Safety Report 13101734 (Version 1)
Quarter: 2017Q1

REPORT INFORMATION
  Report Type: Spontaneous
  Country: KR (occurrence: KR)
  Receive Date: 20170110
  Receipt Date: 20170110
  Transmission Date: 20170428
  Serious: Yes (Hospitalization, Other)
  Sender: FDA-Public Use
  Company Number: KR-009507513-1701KOR003784

PATIENT
  Age: 61 Year
  Sex: Male
  Weight: 62 kg

DRUGS (64)
  1. NAVELBINE [Concomitant]
     Active Substance: VINORELBINE TARTRATE
     Dosage: STRENGTH: 10 MG/ML, CYCLE 2, 41.5 MG, ONCE
     Route: 042
     Dates: start: 20160712, end: 20160712
  2. NAVELBINE [Concomitant]
     Active Substance: VINORELBINE TARTRATE
     Dosage: STRENGTH: 10 MG/ML, CYCLE 4, 31.9 MG, ONCE
     Route: 042
     Dates: start: 20160826, end: 20160826
  3. DEXAMETHASONE. [Concomitant]
     Active Substance: DEXAMETHASONE
     Dosage: STRENGTH: 5 MG/ML,12 MG, QD
     Route: 042
     Dates: start: 20160802, end: 20160802
  4. DEXAMETHASONE. [Concomitant]
     Active Substance: DEXAMETHASONE
     Dosage: 8 MG, BID
     Route: 048
     Dates: start: 20160715, end: 20160715
  5. DEXAMETHASONE. [Concomitant]
     Active Substance: DEXAMETHASONE
     Dosage: 8 MG, QD
     Route: 048
     Dates: start: 20160828, end: 20160828
  6. ALOXI [Concomitant]
     Active Substance: PALONOSETRON HYDROCHLORIDE
     Dosage: 0.25 ML, QD
     Route: 042
     Dates: start: 20120712, end: 20120712
  7. CIMETIDINE [Concomitant]
     Active Substance: CIMETIDINE
     Indication: PREMEDICATION
     Dosage: STRENGTH: 200 MG/2 ML, 1 AMP, QD
     Route: 042
     Dates: start: 20160616, end: 20160617
  8. CIMET [Concomitant]
     Dosage: 200 MG, QD
     Route: 048
     Dates: start: 20160715, end: 20160715
  9. PRIVITUSS [Concomitant]
     Indication: PRODUCTIVE COUGH
  10. CISPLAN [Concomitant]
     Active Substance: CISPLATIN
     Indication: LUNG NEOPLASM MALIGNANT
     Dosage: STRENGTH: 50 MG/100 ML, CYCLE 1, 124.5 MG, ONCE
     Route: 042
     Dates: start: 20160616, end: 20160616
  11. CISPLAN [Concomitant]
     Active Substance: CISPLATIN
     Dosage: STRENGTH: 50 MG/100 ML, CYCLE 2, 93.3 MG, ONCE
     Route: 042
     Dates: start: 20160712, end: 20160712
  12. DEXAMETHASONE. [Concomitant]
     Active Substance: DEXAMETHASONE
     Indication: PREMEDICATION
     Dosage: STRENGTH: 5 MG/ML, 12 MG, QD
     Route: 042
     Dates: start: 20160616, end: 20160616
  13. ALOXI [Concomitant]
     Active Substance: PALONOSETRON HYDROCHLORIDE
     Indication: PREMEDICATION
     Dosage: 0.25 ML, QD
     Route: 042
     Dates: start: 20160616, end: 20160616
  14. CIMETIDINE [Concomitant]
     Active Substance: CIMETIDINE
     Indication: PROPHYLAXIS
     Dosage: STRENGTH: 200 MG/2 ML, 1 AMP, QD
     Route: 042
     Dates: start: 20160712, end: 20160714
  15. CIMETIDINE [Concomitant]
     Active Substance: CIMETIDINE
     Dosage: STRENGTH: 200 MG/2 ML, 1 AMP, QD
     Route: 042
     Dates: start: 20160810, end: 20160810
  16. ASPIRIN. [Concomitant]
     Active Substance: ASPIRIN
     Indication: PROPHYLAXIS
     Dosage: 100 MG, QD
     Route: 048
     Dates: start: 20160713
  17. EMEND (FOSAPREPITANT DIMEGLUMINE) [Suspect]
     Active Substance: FOSAPREPITANT DIMEGLUMINE
     Dosage: 150 MG, QD
     Route: 042
     Dates: start: 20160826, end: 20160826
  18. CISPLAN [Concomitant]
     Active Substance: CISPLATIN
     Dosage: STRENGTH: 50 MG/100 ML, CYCLE 4, 95.6 MG, ONCE
     Route: 042
     Dates: start: 20160826, end: 20160826
  19. DEXAMETHASONE. [Concomitant]
     Active Substance: DEXAMETHASONE
     Dosage: STRENGTH: 5 MG/ML,8 MG, QD
     Route: 042
     Dates: start: 20160827, end: 20160828
  20. DEXAMETHASONE. [Concomitant]
     Active Substance: DEXAMETHASONE
     Indication: PROPHYLAXIS
     Dosage: 8 MG, BID
     Route: 048
     Dates: start: 20160618, end: 20160619
  21. CIMETIDINE [Concomitant]
     Active Substance: CIMETIDINE
     Dosage: STRENGTH: 200 MG/2 ML, 1 AMP, QD
     Route: 042
     Dates: start: 20160826, end: 20160828
  22. PRIVITUSS [Concomitant]
     Indication: COUGH
     Dosage: 1 DF, TID
     Route: 048
     Dates: start: 20160622
  23. INSTANYL [Concomitant]
     Active Substance: FENTANYL
     Indication: PAIN
     Dosage: STRENGTH: 50 MCG/1.8 ML, 1 DF, QD
     Route: 045
     Dates: start: 20160704
  24. LYRICA [Concomitant]
     Active Substance: PREGABALIN
     Indication: PAIN
     Dosage: 75 MG, BID
     Route: 048
     Dates: start: 20160817
  25. HEXAMEDINE [Concomitant]
     Indication: PROPHYLAXIS
     Dosage: 1 DF, QD
     Route: 050
     Dates: start: 20160825
  26. APIDRA [Concomitant]
     Active Substance: INSULIN GLULISINE
     Dosage: STRENGTH: 1000 IU/10 ML,8 IU, QD
     Route: 058
     Dates: start: 20160828, end: 20160828
  27. NAVELBINE [Concomitant]
     Active Substance: VINORELBINE TARTRATE
     Dosage: STRENGTH: 10 MG/ML, CYCLE 2, 41.5 MG, ONCE
     Route: 042
     Dates: start: 20160718, end: 20160718
  28. DEXAMETHASONE. [Concomitant]
     Active Substance: DEXAMETHASONE
     Dosage: STRENGTH: 5 MG/ML,8 MG, QD
     Route: 042
     Dates: start: 20160803, end: 20160803
  29. MACPERAN [Concomitant]
     Active Substance: METOCLOPRAMIDE HYDROCHLORIDE
     Indication: NAUSEA
     Dosage: 2 DF, TID
     Route: 048
     Dates: start: 20160622
  30. ERDOS [Concomitant]
     Indication: COUGH
     Dosage: 300 MG, TID
     Dates: start: 20160629
  31. MEGACE [Concomitant]
     Active Substance: MEGESTROL ACETATE
     Indication: NAUSEA
     Dosage: 1 DF, QD
     Route: 048
     Dates: start: 20160711
  32. APIDRA [Concomitant]
     Active Substance: INSULIN GLULISINE
     Dosage: STRENGTH: 1000 IU/10 ML, 6 IU, QD
     Route: 058
     Dates: start: 20160827, end: 20160827
  33. EMEND (FOSAPREPITANT DIMEGLUMINE) [Suspect]
     Active Substance: FOSAPREPITANT DIMEGLUMINE
     Indication: PROPHYLAXIS OF NAUSEA AND VOMITING
     Dosage: 150 MG, QD
     Route: 042
     Dates: start: 20160616, end: 20160616
  34. EMEND (FOSAPREPITANT DIMEGLUMINE) [Suspect]
     Active Substance: FOSAPREPITANT DIMEGLUMINE
     Dosage: 150 MG, QD
     Route: 042
     Dates: start: 20160802, end: 20160802
  35. NAVELBINE [Concomitant]
     Active Substance: VINORELBINE TARTRATE
     Indication: LUNG NEOPLASM MALIGNANT
     Dosage: STRENGTH: 10 MG/ML, CYCLE 1, 41.5 MG, ONCE
     Route: 042
     Dates: start: 20160616, end: 20160616
  36. DEXAMETHASONE. [Concomitant]
     Active Substance: DEXAMETHASONE
     Dosage: STRENGTH: 5 MG/ML, 8 MG, QD
     Route: 042
     Dates: start: 20160712, end: 20160712
  37. DEXAMETHASONE. [Concomitant]
     Active Substance: DEXAMETHASONE
     Dosage: STRENGTH: 5 MG/ML, 8 MG, QD
     Route: 042
     Dates: start: 20160714, end: 20160714
  38. DEXAMETHASONE. [Concomitant]
     Active Substance: DEXAMETHASONE
     Dosage: STRENGTH: 5 MG/ML, 8 MG, QD
     Route: 042
     Dates: start: 20160718, end: 20160718
  39. DEXAMETHASONE. [Concomitant]
     Active Substance: DEXAMETHASONE
     Dosage: 8 MG, QD
     Route: 048
     Dates: start: 20160714, end: 20160714
  40. DEXAMETHASONE. [Concomitant]
     Active Substance: DEXAMETHASONE
     Dosage: 8 MG, BID
     Route: 048
     Dates: start: 20160829, end: 20160829
  41. CIMETIDINE [Concomitant]
     Active Substance: CIMETIDINE
     Dosage: STRENGTH: 200 MG/2 ML, 1 AMP, QD
     Route: 042
     Dates: start: 20160718, end: 20160718
  42. PANTOLOC [Concomitant]
     Active Substance: PANTOPRAZOLE SODIUM
     Indication: PROPHYLAXIS
     Dosage: 20 MG, QD
     Route: 048
     Dates: start: 20160714, end: 20160914
  43. NAVELBINE [Concomitant]
     Active Substance: VINORELBINE TARTRATE
     Dosage: STRENGTH: 10 MG/ML, CYCLE 1, 41.5 MG, ONCE
     Route: 042
     Dates: start: 20160622, end: 20160622
  44. NAVELBINE [Concomitant]
     Active Substance: VINORELBINE TARTRATE
     Dosage: STRENGTH: 10 MG/ML, CYCLE 3, 42 MG, ONCE
     Route: 042
     Dates: start: 20160802, end: 20160802
  45. DEXAMETHASONE. [Concomitant]
     Active Substance: DEXAMETHASONE
     Indication: PROPHYLAXIS
     Dosage: STRENGTH: 5 MG/ML, 8 MG, QD
     Route: 042
     Dates: start: 20160617, end: 20160617
  46. DEXAMETHASONE. [Concomitant]
     Active Substance: DEXAMETHASONE
     Dosage: STRENGTH: 5 MG/ML, 12 MG, QD
     Route: 042
     Dates: start: 20160712, end: 20160712
  47. DEXAMETHASONE. [Concomitant]
     Active Substance: DEXAMETHASONE
     Dosage: STRENGTH: 5 MG/ML,12 MG, QD
     Route: 042
     Dates: start: 20160826, end: 20160826
  48. ERDOS [Concomitant]
     Indication: PRODUCTIVE COUGH
  49. APIDRA [Concomitant]
     Active Substance: INSULIN GLULISINE
     Indication: ACUTE KIDNEY INJURY
     Dosage: STRENGTH: 1000 IU/10 ML, 4 IU, QD
     Route: 058
     Dates: start: 20160826, end: 20160826
  50. APIDRA [Concomitant]
     Active Substance: INSULIN GLULISINE
     Dosage: STRENGTH: 1000 IU/10 ML,8 IU, QD
     Route: 058
     Dates: start: 20160827, end: 20160827
  51. DEXAMETHASONE. [Concomitant]
     Active Substance: DEXAMETHASONE
     Dosage: STRENGTH: 5 MG/ML,8 MG, QD
     Route: 042
     Dates: start: 20160810, end: 20160810
  52. ALOXI [Concomitant]
     Active Substance: PALONOSETRON HYDROCHLORIDE
     Dosage: 0.25 ML, QD
     Route: 042
     Dates: start: 20160802, end: 20160802
  53. CIMET [Concomitant]
     Indication: PROPHYLAXIS
     Dosage: 200 MG, QD
     Route: 048
     Dates: start: 20160618, end: 20160619
  54. CIMET [Concomitant]
     Dosage: 200 MG, QD
     Route: 048
     Dates: start: 20160829, end: 20160829
  55. APIDRA [Concomitant]
     Active Substance: INSULIN GLULISINE
     Dosage: STRENGTH: 1000 IU/10 ML, 10 IU, QD
     Route: 058
     Dates: start: 20160826, end: 20160826
  56. EMEND (FOSAPREPITANT DIMEGLUMINE) [Suspect]
     Active Substance: FOSAPREPITANT DIMEGLUMINE
     Dosage: 150 MG, QD
     Route: 042
     Dates: start: 20160712, end: 20160712
  57. NAVELBINE [Concomitant]
     Active Substance: VINORELBINE TARTRATE
     Dosage: STRENGTH: 10 MG/ML, CYCLE 3, 42 MG, ONCE
     Route: 042
     Dates: start: 20160810, end: 20160810
  58. CISPLAN [Concomitant]
     Active Substance: CISPLATIN
     Dosage: STRENGTH: 50 MG/100 ML, CYCLE 3, 95 MG, ONCE
     Route: 042
     Dates: start: 20160802, end: 20160802
  59. DEXAMETHASONE. [Concomitant]
     Active Substance: DEXAMETHASONE
     Dosage: STRENGTH: 5 MG/ML, 8 MG, QD
     Route: 042
     Dates: start: 20160622, end: 20160622
  60. DEXAMETHASONE. [Concomitant]
     Active Substance: DEXAMETHASONE
     Dosage: 8 MG, BID
     Route: 048
     Dates: start: 20160804, end: 20160805
  61. ALOXI [Concomitant]
     Active Substance: PALONOSETRON HYDROCHLORIDE
     Dosage: 0.25 ML, QD
     Route: 042
     Dates: start: 20160826, end: 20160826
  62. CIMETIDINE [Concomitant]
     Active Substance: CIMETIDINE
     Dosage: STRENGTH: 200 MG/2 ML, 1 AMP, QD
     Route: 042
     Dates: start: 20160802, end: 20160803
  63. CIMET [Concomitant]
     Dosage: 200 MG, QD
     Route: 048
     Dates: start: 20160804, end: 20160805
  64. OLMETEC [Concomitant]
     Active Substance: OLMESARTAN MEDOXOMIL
     Indication: HYPERTENSION
     Dosage: 0.5 DF, QD
     Route: 048
     Dates: start: 20160704

REACTIONS (2)
  - Acute kidney injury [Recovered/Resolved]
  - Diarrhoea [Recovered/Resolved]

NARRATIVE: CASE EVENT DATE: 20160826
